FAERS Safety Report 16837521 (Version 1)
Quarter: 2019Q3

REPORT INFORMATION
  Report Type: Spontaneous
  Country: BE (occurrence: BE)
  Receive Date: 20190923
  Receipt Date: 20190923
  Transmission Date: 20191005
  Serious: Yes (Hospitalization)
  Sender: FDA-Public Use
  Company Number: BE-009507513-1909BEL007809

PATIENT
  Age: 61 Year
  Sex: Male

DRUGS (3)
  1. KEYTRUDA [Suspect]
     Active Substance: PEMBROLIZUMAB
     Indication: ADENOCARCINOMA
     Dosage: UNK
     Dates: start: 2019, end: 2019
  2. ALIMTA [Concomitant]
     Active Substance: PEMETREXED DISODIUM
     Indication: ADENOCARCINOMA
     Dosage: UNK
     Dates: start: 2019, end: 2019
  3. PLATINUM [Concomitant]
     Active Substance: PLATINUM
     Indication: ADENOCARCINOMA
     Dosage: UNK
     Dates: start: 2019, end: 2019

REACTIONS (2)
  - Skin ulcer [Unknown]
  - Rash [Recovered/Resolved]

NARRATIVE: CASE EVENT DATE: 2019
